FAERS Safety Report 7182735-3 (Version None)
Quarter: 2010Q4

REPORT INFORMATION
  Report Type: 
  Country: None (occurrence: None)
  Receive Date: 20101221
  Receipt Date: 20100624
  Transmission Date: 20110411
  Serious: No
  Sender: FDA-Public Use
  Company Number: US-AMGEN-TCS407500

PATIENT

DRUGS (1)
  1. ENBREL [Suspect]
     Indication: PSORIASIS
     Dosage: 50 MG, QWK
     Route: 058
     Dates: start: 20040801

REACTIONS (5)
  - MALAISE [None]
  - PSORIASIS [None]
  - UPPER RESPIRATORY TRACT INFECTION [None]
  - WOUND [None]
  - WOUND HAEMORRHAGE [None]
